FAERS Safety Report 7968017 (Version 3)
Quarter: 2012Q4

REPORT INFORMATION
  Report Type: Report from Study
  Country: CA (occurrence: CA)
  Receive Date: 20110601
  Receipt Date: 20120910
  Transmission Date: 20130627
  Serious: Yes (Hospitalization)
  Sender: FDA-Public Use
  Company Number: CA-BRISTOL-MYERS SQUIBB COMPANY-15773427

PATIENT
  Age: 59 Year
  Sex: Male

DRUGS (14)
  1. ERBITUX [Suspect]
     Indication: NON-SMALL CELL LUNG CANCER
     Route: 042
     Dates: start: 20110412
  2. CISPLATIN [Suspect]
     Indication: NON-SMALL CELL LUNG CANCER
     Route: 042
     Dates: start: 20110412
  3. VINORELBINE [Suspect]
     Indication: NON-SMALL CELL LUNG CANCER
     Route: 042
     Dates: start: 20110412
  4. LIPITOR [Concomitant]
     Dates: start: 20110107
  5. ZOPICLONE [Concomitant]
     Dates: start: 20110208
  6. DILAUDID [Concomitant]
     Dates: start: 201103
  7. SENOKOT [Concomitant]
     Dates: start: 201103
  8. MS CONTIN [Concomitant]
     Dates: start: 201103
  9. DEXAMETHASONE [Concomitant]
     Dates: start: 201103
  10. LYRICA [Concomitant]
     Dates: start: 201103
  11. COLACE [Concomitant]
     Dates: start: 201104
  12. PANTOLOC [Concomitant]
     Dates: start: 201104
  13. NYSTATIN [Concomitant]
     Dates: start: 201105
  14. ATIVAN [Concomitant]
     Dates: start: 201105

REACTIONS (1)
  - Pulmonary embolism [Recovered/Resolved]
